FAERS Safety Report 7217097-6 (Version None)
Quarter: 2011Q1

REPORT INFORMATION
  Report Type: 
  Country: None (occurrence: None)
  Receive Date: 20110110
  Receipt Date: 20101227
  Transmission Date: 20110831
  Serious: Yes (Death)
  Sender: FDA-Public Use
  Company Number: US-CELGENEUS-163-20785-10123202

PATIENT
  Sex: Female

DRUGS (1)
  1. THALOMID [Suspect]
     Route: 048
     Dates: start: 20101001

REACTIONS (1)
  - HODGKIN'S DISEASE LYMPHOCYTE PREDOMINANCE TYPE STAGE UNSPECIFIED [None]
